FAERS Safety Report 6379078-4 (Version None)
Quarter: 2009Q3

REPORT INFORMATION
  Report Type: 
  Country: None (occurrence: None)
  Receive Date: 20090928
  Receipt Date: 20090918
  Transmission Date: 20100115
  Serious: Yes (Hospitalization, Other)
  Sender: FDA-Public Use
  Company Number: FR-BAYER-200933070GPV

PATIENT
  Age: 74 Year
  Sex: Female

DRUGS (7)
  1. CIFLOX [Suspect]
     Indication: DIVERTICULITIS
     Dosage: TOTAL DAILY DOSE: 500 MG  UNIT DOSE: 500 MG
     Route: 048
     Dates: start: 20090724, end: 20090803
  2. PREVISCAN [Interacting]
     Indication: THROMBOSIS PROPHYLAXIS
     Dosage: DOSE ACCORDING TO INR
     Route: 048
     Dates: end: 20090804
  3. FLAGYL [Interacting]
     Indication: DIVERTICULITIS
     Dosage: TOTAL DAILY DOSE: 1500 MG  UNIT DOSE: 500 MG
     Route: 048
     Dates: start: 20090724, end: 20090803
  4. LIPANTHYL [Interacting]
     Indication: DYSLIPIDAEMIA
     Dosage: TOTAL DAILY DOSE: 145 MG  UNIT DOSE: 145 MG
     Route: 048
  5. BIPRETERAX [Concomitant]
     Indication: DRUG USE FOR UNKNOWN INDICATION
     Route: 065
  6. DILTIAZEM HCL [Concomitant]
     Indication: DRUG USE FOR UNKNOWN INDICATION
  7. IMOVANE [Concomitant]
     Indication: DRUG USE FOR UNKNOWN INDICATION
     Route: 065

REACTIONS (5)
  - CEREBRAL HAEMATOMA [None]
  - HAEMORRHAGIC STROKE [None]
  - HEADACHE [None]
  - HEMIANOPIA [None]
  - INTERNATIONAL NORMALISED RATIO INCREASED [None]
